FAERS Safety Report 21904639 (Version 1)
Quarter: 2023Q1

REPORT INFORMATION
  Report Type: Spontaneous
  Country: US (occurrence: None)
  Receive Date: 20230124
  Receipt Date: 20230124
  Transmission Date: 20230418
  Serious: No
  Sender: FDA-Public Use
  Company Number: None

PATIENT
  Age: 74 Year
  Sex: Male
  Weight: 93.89 kg

DRUGS (3)
  1. OLANZAPINE [Suspect]
     Active Substance: OLANZAPINE
     Indication: Schizophrenia
     Dates: end: 20221015
  2. OLANZAPINE [Suspect]
     Active Substance: OLANZAPINE
     Dates: end: 20221015
  3. HALOPERIDOL [Suspect]
     Active Substance: HALOPERIDOL

REACTIONS (2)
  - Gastrointestinal hypomotility [None]
  - Therapy change [None]

NARRATIVE: CASE EVENT DATE: 20221010
